FAERS Safety Report 4930156-3 (Version None)
Quarter: 2006Q1

REPORT INFORMATION
  Report Type: 
  Country: None (occurrence: None)
  Receive Date: 20060302
  Receipt Date: 20060222
  Transmission Date: 20060701
  Serious: Yes (Death, Hospitalization, Other)
  Sender: FDA-Public Use
  Company Number: US-JNJFOC-20060201685

PATIENT
  Sex: Female
  Weight: 55.4 kg

DRUGS (13)
  1. DOXIL [Suspect]
     Route: 042
  2. DOXIL [Suspect]
     Indication: MULTIPLE MYELOMA
     Route: 042
  3. THALIDOMIDE [Suspect]
     Indication: MULTIPLE MYELOMA
     Route: 048
  4. DEXAMETHASONE [Suspect]
     Indication: MULTIPLE MYELOMA
     Route: 048
  5. ACYCLOVIR SODIUM [Concomitant]
  6. ASPIRIN [Concomitant]
  7. BACTRIM [Concomitant]
  8. BACTRIM [Concomitant]
  9. BENZONATATE [Concomitant]
  10. CALCITONIN [Concomitant]
  11. FUROSEMIDE [Concomitant]
  12. METOPROLOL [Concomitant]
  13. COUMADIN [Concomitant]

REACTIONS (19)
  - ACUTE RESPIRATORY DISTRESS SYNDROME [None]
  - ALANINE AMINOTRANSFERASE INCREASED [None]
  - ASPARTATE AMINOTRANSFERASE INCREASED [None]
  - BLOOD ALKALINE PHOSPHATASE INCREASED [None]
  - BLOOD CHLORIDE DECREASED [None]
  - BLOOD GLUCOSE INCREASED [None]
  - BLOOD PRESSURE DECREASED [None]
  - HAEMATOCRIT DECREASED [None]
  - HAEMOGLOBIN DECREASED [None]
  - HEART RATE DECREASED [None]
  - HYPERCALCAEMIA [None]
  - HYPOAESTHESIA [None]
  - LIPASE INCREASED [None]
  - MYOCARDIAL INFARCTION [None]
  - NAUSEA [None]
  - PAIN [None]
  - PHARYNGOLARYNGEAL PAIN [None]
  - RENAL FAILURE CHRONIC [None]
  - VOMITING [None]
